FAERS Safety Report 18265021 (Version 2)
Quarter: 2020Q3

REPORT INFORMATION
  Report Type: Spontaneous
  Country: None (occurrence: US)
  Receive Date: 20200915
  Receipt Date: 20200915
  Transmission Date: 20201103
  Serious: Yes (Other)
  Sender: FDA-Public Use
  Company Number: US-JIANGSU HENGRUI MEDICINE CO., LTD.-2090710

PATIENT
  Age: 62 Year
  Sex: Female

DRUGS (9)
  1. MOZOBIL [Suspect]
     Active Substance: PLERIXAFOR
  2. RDHAP (CYTARABINE) [Suspect]
     Active Substance: CYTARABINE
  3. RDHAP (DEXAMETHASONE) [Suspect]
     Active Substance: DEXAMETHASONE
  4. RDHAP (RITUXIMAB) [Suspect]
     Active Substance: RITUXIMAB
  5. R CHOP (CYCLOPHOSPHAMIDE, DOXORUBICIN HYDROCHLORIDE, PREDNISONE, RITUX [Suspect]
     Active Substance: CYCLOPHOSPHAMIDE\DOXORUBICIN\PREDNISONE\RITUXIMAB\VINCRISTINE
  6. RDHAP (CISPLATIN) [Suspect]
     Active Substance: CISPLATIN
  7. CYCLOPHOSPHAMIDE FOR INJECTION USP, 500 MG, 1 G AND 2 G PER SINGLE?DOS [Suspect]
     Active Substance: CYCLOPHOSPHAMIDE
     Indication: DIFFUSE LARGE B-CELL LYMPHOMA
  8. RMCHOP (CYCLOPHOSPHAMIDE\DOXORUBICIN\PREDNISOLONE\VINCRISTINE) [Suspect]
     Active Substance: CYCLOPHOSPHAMIDE\DOXORUBICIN\PREDNISOLONE\VINCRISTINE
  9. CYTARABINE. [Suspect]
     Active Substance: CYTARABINE

REACTIONS (3)
  - Diffuse large B-cell lymphoma recurrent [Not Recovered/Not Resolved]
  - Diplopia [Not Recovered/Not Resolved]
  - Strabismus [Not Recovered/Not Resolved]
